FAERS Safety Report 16680179 (Version 1)
Quarter: 2019Q3

REPORT INFORMATION
  Report Type: Spontaneous
  Country: US (occurrence: US)
  Receive Date: 20190807
  Receipt Date: 20190807
  Transmission Date: 20191004
  Serious: Yes (Hospitalization)
  Sender: FDA-Public Use
  Company Number: PHHY2019US182726

PATIENT
  Age: 5 Month
  Sex: Female

DRUGS (2)
  1. FOLIC ACID. [Suspect]
     Active Substance: FOLIC ACID
     Dosage: UNK
     Route: 063
  2. FOLIC ACID. [Suspect]
     Active Substance: FOLIC ACID
     Indication: FOETAL EXPOSURE DURING PREGNANCY
     Dosage: UNK
     Route: 064

REACTIONS (14)
  - Asthenia [Unknown]
  - Gaze palsy [Unknown]
  - Neutropenia [Unknown]
  - Vomiting [Unknown]
  - Haemolysis [Unknown]
  - Foetal exposure during pregnancy [Unknown]
  - Lethargy [Recovered/Resolved]
  - Pallor [Unknown]
  - Exposure via breast milk [Unknown]
  - Erythropoiesis abnormal [Unknown]
  - Vitamin B12 deficiency [Unknown]
  - Pancytopenia [Recovering/Resolving]
  - Anaemia neonatal [Unknown]
  - Hypotonia neonatal [Unknown]
